FAERS Safety Report 10609775 (Version 1)
Quarter: 2014Q4

REPORT INFORMATION
  Report Type: Spontaneous
  Country: DK (occurrence: None)
  Receive Date: 20141124
  Receipt Date: 20141124
  Transmission Date: 20150529
  Serious: Yes (Hospitalization, Other)
  Sender: FDA-Public Use
  Company Number: ADR-2014-02221

PATIENT
  Age: 41 Year
  Sex: Female

DRUGS (3)
  1. ALCOHOL. [Suspect]
     Active Substance: ALCOHOL
  2. PSYCHOTROPIC [Suspect]
     Active Substance: UNSPECIFIED INGREDIENT
  3. BACLOFEN (ORAL) [Suspect]
     Active Substance: BACLOFEN
     Dosage: (MEAN DOSE)

REACTIONS (3)
  - Delirium [None]
  - Toxicity to various agents [None]
  - Loss of consciousness [None]

NARRATIVE: CASE EVENT DATE: 20140101
